FAERS Safety Report 10860575 (Version 2)
Quarter: 2015Q1

REPORT INFORMATION
  Report Type: Spontaneous
  Country: NL (occurrence: NL)
  Receive Date: 20150223
  Receipt Date: 20150311
  Transmission Date: 20150721
  Serious: Yes (Congenital Anomaly)
  Sender: FDA-Public Use
  Company Number: PHHY2015NL017770

PATIENT
  Sex: Male
  Weight: 3 kg

DRUGS (1)
  1. CLOMIPRAMINE [Suspect]
     Active Substance: CLOMIPRAMINE
     Indication: PRODUCT USED FOR UNKNOWN INDICATION
     Dosage: MOTHER DOSE (25 MG TABLET, 3 DF, QD)
     Route: 064

REACTIONS (3)
  - Premature baby [None]
  - Maternal drugs affecting foetus [None]
  - Congenital hand malformation [Recovered/Resolved with Sequelae]

NARRATIVE: CASE EVENT DATE: 20120810
